FAERS Safety Report 12410899 (Version 1)
Quarter: 2016Q2

REPORT INFORMATION
  Report Type: Spontaneous
  Country: US (occurrence: US)
  Receive Date: 20160527
  Receipt Date: 20160527
  Transmission Date: 20160815
  Serious: Yes (Other)
  Sender: FDA-Public Use
  Company Number: US-ROCHE-1763487

PATIENT
  Sex: Male
  Weight: 70.37 kg

DRUGS (9)
  1. TRAZODONE [Concomitant]
     Active Substance: TRAZODONE HYDROCHLORIDE
  2. OXYCODONE [Concomitant]
     Active Substance: OXYCODONE
  3. EYLEA [Suspect]
     Active Substance: AFLIBERCEPT
     Indication: MACULAR DEGENERATION
     Dosage: BOTH EYES (OU),
     Route: 031
     Dates: start: 2015
  4. METHADONE [Concomitant]
     Active Substance: METHADONE HYDROCHLORIDE
  5. EYLEA [Suspect]
     Active Substance: AFLIBERCEPT
     Route: 031
     Dates: start: 20160503, end: 20160503
  6. AVASTIN [Suspect]
     Active Substance: BEVACIZUMAB
     Indication: MACULAR DEGENERATION
     Route: 031
  7. BENADRYL [Concomitant]
     Active Substance: DIPHENHYDRAMINE HYDROCHLORIDE
  8. CARISOPRODOL. [Concomitant]
     Active Substance: CARISOPRODOL
  9. AREDS II (UNK INGREDIENTS) [Concomitant]

REACTIONS (3)
  - Prostate cancer [Unknown]
  - Intraocular pressure increased [Recovered/Resolved]
  - Injection site pain [Recovered/Resolved]

NARRATIVE: CASE EVENT DATE: 201512
